FAERS Safety Report 14487666 (Version 2)
Quarter: 2018Q2

REPORT INFORMATION
  Report Type: Spontaneous
  Country: US (occurrence: US)
  Receive Date: 20180205
  Receipt Date: 20180608
  Transmission Date: 20180711
  Serious: Yes (Hospitalization)
  Sender: FDA-Public Use
  Company Number: US-PFIZER INC-2018048076

PATIENT
  Age: 71 Year
  Sex: Female
  Weight: 58.96 kg

DRUGS (1)
  1. NORVASC [Suspect]
     Active Substance: AMLODIPINE BESYLATE
     Indication: BLOOD PRESSURE ABNORMAL
     Dosage: 1 DF DAILY 4 DAYS/WEEK THEN 2 DF DAILY 2 DAYS/WEEK FOR BLOOD PRESSURE.
     Route: 048
     Dates: start: 201801

REACTIONS (4)
  - Dehydration [Not Recovered/Not Resolved]
  - Hyperhidrosis [Not Recovered/Not Resolved]
  - Blood pressure inadequately controlled [Unknown]
  - Product use issue [Unknown]

NARRATIVE: CASE EVENT DATE: 201801
